FAERS Safety Report 10047058 (Version 1)
Quarter: 2014Q1

REPORT INFORMATION
  Report Type: Spontaneous
  Country: US (occurrence: US)
  Receive Date: 20140331
  Receipt Date: 20140331
  Transmission Date: 20141002
  Serious: No
  Sender: FDA-Public Use
  Company Number: US-MYLANLABS-2013S1004122

PATIENT
  Age: 41 Year
  Sex: Female
  Weight: 61.24 kg

DRUGS (13)
  1. FENTANYL TRANSDERMAL SYSTEM [Suspect]
     Indication: OCCIPITAL NEURALGIA
     Dosage: Q48HR
     Route: 062
  2. FENTANYL TRANSDERMAL SYSTEM [Suspect]
     Indication: OCCIPITAL NEURALGIA
     Dosage: Q48HR
     Route: 062
  3. DILAUDID [Concomitant]
     Indication: PAIN
  4. SOMA [Concomitant]
     Indication: MUSCLE RELAXANT THERAPY
  5. ONDANSETRON [Concomitant]
     Indication: NAUSEA
  6. NEXIUM [Concomitant]
     Indication: GASTROOESOPHAGEAL REFLUX DISEASE
  7. VALIUM [Concomitant]
  8. POLYETHYLENE GLYCOL 3350 [Concomitant]
     Indication: CONSTIPATION
  9. HYOMAX [Concomitant]
     Indication: GASTROINTESTINAL PAIN
  10. PROMETHAZINE [Concomitant]
     Indication: NAUSEA
  11. ATENOLOL [Concomitant]
     Indication: TACHYCARDIA
  12. ADDERALL [Concomitant]
     Indication: ATTENTION DEFICIT/HYPERACTIVITY DISORDER
  13. KETOROLAC [Concomitant]
     Indication: PAIN

REACTIONS (4)
  - Drug effect decreased [Not Recovered/Not Resolved]
  - Pain [Not Recovered/Not Resolved]
  - Incorrect drug administration duration [Not Recovered/Not Resolved]
  - Intentional drug misuse [Not Recovered/Not Resolved]
